FAERS Safety Report 12695439 (Version 2)
Quarter: 2016Q3

REPORT INFORMATION
  Report Type: Spontaneous
  Country: US (occurrence: US)
  Receive Date: 20160829
  Receipt Date: 20160923
  Transmission Date: 20161109
  Serious: Yes (Other)
  Sender: FDA-Public Use
  Company Number: US-JNJFOC-20160814156

PATIENT
  Age: 81 Year
  Sex: Female
  Weight: 117.94 kg

DRUGS (2)
  1. NIZORAL [Suspect]
     Active Substance: KETOCONAZOLE
     Indication: HELMINTHIC INFECTION
     Route: 061
     Dates: start: 201606
  2. NIZORAL [Suspect]
     Active Substance: KETOCONAZOLE
     Indication: INFESTATION
     Route: 061
     Dates: start: 201606

REACTIONS (7)
  - Mental impairment [Not Recovered/Not Resolved]
  - Decreased appetite [Not Recovered/Not Resolved]
  - Product label issue [Not Recovered/Not Resolved]
  - Product use issue [Unknown]
  - Abnormal loss of weight [Not Recovered/Not Resolved]
  - Off label use [Unknown]
  - Drug ineffective [Unknown]

NARRATIVE: CASE EVENT DATE: 2016
